FAERS Safety Report 15117532 (Version 2)
Quarter: 2018Q3

REPORT INFORMATION
  Report Type: Spontaneous
  Country: JP (occurrence: JP)
  Receive Date: 20180706
  Receipt Date: 20180813
  Transmission Date: 20181010
  Serious: Yes (Hospitalization)
  Sender: FDA-Public Use
  Company Number: PHJP2018JP013433

PATIENT
  Age: 67 Year
  Sex: Male

DRUGS (12)
  1. COMTAN [Suspect]
     Active Substance: ENTACAPONE
     Indication: PARKINSON^S DISEASE
     Dosage: 1 DF, UNK
     Route: 048
  2. DOMPERIDONE [Concomitant]
     Active Substance: DOMPERIDONE
     Indication: PRODUCT USED FOR UNKNOWN INDICATION
     Dosage: UNK
     Route: 065
  3. LEVODOPA/CARBIDOPA [Concomitant]
     Active Substance: CARBIDOPA\LEVODOPA
     Dosage: 1 DF, UNK
     Route: 065
  4. GALANTAMINE. [Concomitant]
     Active Substance: GALANTAMINE
     Indication: PERSECUTORY DELUSION
     Dosage: 24 MG, BID
     Route: 065
  5. ZONISAMIDE. [Concomitant]
     Active Substance: ZONISAMIDE
     Dosage: 25 MG, QD
     Route: 065
  6. SENNOSIDE [Concomitant]
     Active Substance: SENNOSIDES
     Indication: PRODUCT USED FOR UNKNOWN INDICATION
     Dosage: UNK
     Route: 065
  7. GALANTAMINE. [Concomitant]
     Active Substance: GALANTAMINE
     Indication: HALLUCINATION
     Dosage: 12 MG, UNK
     Route: 065
  8. DOPASTON [Concomitant]
     Active Substance: LEVODOPA
     Indication: THERAPEUTIC RESPONSE SHORTENED
     Dosage: 900MG, EVERY 12 HOURS
     Route: 065
  9. LEVODOPA/CARBIDOPA [Concomitant]
     Active Substance: CARBIDOPA\LEVODOPA
     Indication: PARKINSON^S DISEASE
     Dosage: 800 MG, Q2H
     Route: 065
  10. LEVODOPA/CARBIDOPA [Concomitant]
     Active Substance: CARBIDOPA\LEVODOPA
     Dosage: 9.1 ML (MORNING), THE DOSE OF CONTINUOUS INFUSION: 2.6ML/HOUR
     Route: 042
  11. LEVODOPA/CARBIDOPA [Concomitant]
     Active Substance: CARBIDOPA\LEVODOPA
     Dosage: 600 MG, UNK
     Route: 065
  12. ZONISAMIDE. [Concomitant]
     Active Substance: ZONISAMIDE
     Indication: PRODUCT USED FOR UNKNOWN INDICATION
     Dosage: 50 MG, UNK
     Route: 065

REACTIONS (7)
  - Infection [Unknown]
  - Concomitant disease progression [Unknown]
  - Hallucination [Unknown]
  - Dehydration [Unknown]
  - Therapeutic response shortened [Unknown]
  - Constipation [Unknown]
  - Fall [Unknown]
